FAERS Safety Report 11144999 (Version 1)
Quarter: 2015Q2

REPORT INFORMATION
  Report Type: Spontaneous
  Country: GB (occurrence: GB)
  Receive Date: 20150528
  Receipt Date: 20150528
  Transmission Date: 20150821
  Serious: Yes (Hospitalization, Other)
  Sender: FDA-Public Use
  Company Number: GB-TEVA-564680ACC

PATIENT
  Age: 74 Year
  Sex: Male

DRUGS (4)
  1. AVASTIN [Suspect]
     Active Substance: BEVACIZUMAB
     Indication: ADENOCARCINOMA GASTRIC
     Dosage: 7.5MG/KG. LAST DOSE RECEIVED ON 07/JUL/2012
     Route: 042
     Dates: start: 20110920
  2. XELODA [Suspect]
     Active Substance: CAPECITABINE
     Indication: ADENOCARCINOMA GASTRIC
     Dosage: LAST DOSE RECEIVED ON 10/APR/2012
     Route: 048
     Dates: start: 20110920
  3. CISPLATIN. [Suspect]
     Active Substance: CISPLATIN
     Indication: ADENOCARCINOMA GASTRIC
     Dosage: LAST DOSE RECEIVED ON 10/APR/2012
     Route: 042
     Dates: start: 20110920
  4. EPIRUBICIN [Suspect]
     Active Substance: EPIRUBICIN
     Indication: ADENOCARCINOMA GASTRIC
     Dosage: LAST DOSE RECEIVED ON 10/APR/2012
     Route: 042
     Dates: start: 20110920

REACTIONS (3)
  - Cardiac failure [Recovered/Resolved with Sequelae]
  - Pulmonary oedema [Unknown]
  - Dyspnoea [Unknown]

NARRATIVE: CASE EVENT DATE: 20120926
